FAERS Safety Report 4320683-4 (Version None)
Quarter: 2004Q1

REPORT INFORMATION
  Report Type: 
  Country: None (occurrence: None)
  Receive Date: 20040318
  Receipt Date: 20040301
  Transmission Date: 20041129
  Serious: Yes (Hospitalization)
  Sender: FDA-Public Use
  Company Number: F04200300196

PATIENT
  Age: 82 Year
  Sex: Female

DRUGS (9)
  1. ARIXTRA [Suspect]
     Indication: KNEE ARTHROPLASTY
     Dosage: 2.5 MG OD SUBCUTANEOUS
     Route: 058
     Dates: start: 20030204, end: 20030209
  2. ARIXTRA [Suspect]
     Indication: THROMBOSIS PROPHYLAXIS
     Dosage: 2.5 MG OD SUBCUTANEOUS
     Route: 058
     Dates: start: 20030204, end: 20030209
  3. VIOXX [Concomitant]
  4. TRAMAL LONG (TRAMADOL HYDROCHLORIDE) [Concomitant]
  5. NOVALDIN INJ [Concomitant]
  6. DUSODRIL RET. (NAFTIDROFURYL OXALATE) [Concomitant]
  7. DIDRONEL-KIT (ETIDRONATE SODIUM/CALCIUMCARBONATE) [Concomitant]
  8. FERRUM RET. (FERROUS FUMARATE) [Concomitant]
  9. EUNOVA FORTE (VITAMINS/MINERALS) [Concomitant]

REACTIONS (4)
  - ANAEMIA [None]
  - GASTRIC ULCER HAEMORRHAGE [None]
  - HAEMOGLOBIN DECREASED [None]
  - RED BLOOD CELL COUNT DECREASED [None]
